FAERS Safety Report 12607620 (Version 1)
Quarter: 2016Q3

REPORT INFORMATION
  Report Type: Spontaneous
  Country: US (occurrence: US)
  Receive Date: 20160729
  Receipt Date: 20160729
  Transmission Date: 20161109
  Serious: No
  Sender: FDA-Public Use
  Company Number: US-BAYER-2016-142820

PATIENT
  Age: 78 Year
  Sex: Female

DRUGS (1)
  1. CLIMARA [Suspect]
     Active Substance: ESTRADIOL
     Dosage: UNK
     Route: 062
     Dates: start: 2009

REACTIONS (6)
  - Unintentional medical device removal [None]
  - Physical product label issue [None]
  - Intentional product use issue [None]
  - Drug intolerance [None]
  - Drug ineffective [None]
  - Device physical property issue [None]
